FAERS Safety Report 9780892 (Version 1)
Quarter: 2013Q4

REPORT INFORMATION
  Report Type: Spontaneous
  Country: DE (occurrence: DE)
  Receive Date: 20131224
  Receipt Date: 20131224
  Transmission Date: 20140711
  Serious: Yes (Other)
  Sender: FDA-Public Use
  Company Number: DE-DRREDDYS-GER/GER/13/0036575

PATIENT
  Age: 37 Year
  Sex: Female

DRUGS (3)
  1. VENLAFAXINE [Suspect]
     Indication: DEPRESSION
     Route: 048
  2. SEROQUEL [Suspect]
     Indication: DEPRESSION
     Route: 048
  3. ELONTRIL [Suspect]
     Indication: DEPRESSION
     Route: 048

REACTIONS (3)
  - Amniocentesis abnormal [Unknown]
  - Umbilical cord abnormality [Unknown]
  - Exposure during pregnancy [Unknown]
